FAERS Safety Report 7229656-5 (Version None)
Quarter: 2011Q1

REPORT INFORMATION
  Report Type: 
  Country: None (occurrence: None)
  Receive Date: 20110117
  Receipt Date: 20110106
  Transmission Date: 20110831
  Serious: Yes (Death, Other)
  Sender: FDA-Public Use
  Company Number: PHHY2010ZA59201

PATIENT
  Sex: Female

DRUGS (3)
  1. HYDREA [Concomitant]
     Dosage: UNK
  2. GLEEVEC [Suspect]
     Dosage: UNK
     Dates: start: 20081030, end: 20091110
  3. BUSULFAN [Concomitant]
     Dosage: UNK

REACTIONS (4)
  - THERAPEUTIC RESPONSE DECREASED [None]
  - GENE MUTATION IDENTIFICATION TEST POSITIVE [None]
  - NO THERAPEUTIC RESPONSE [None]
  - CHRONIC MYELOID LEUKAEMIA [None]
